FAERS Safety Report 4333749-X (Version None)
Quarter: 2004Q2

REPORT INFORMATION
  Report Type: 
  Country: None (occurrence: None)
  Receive Date: 20040406
  Receipt Date: 20040406
  Transmission Date: 20050107
  Serious: Yes (Other)
  Sender: FDA-Public Use
  Company Number: None

PATIENT
  Sex: Female
  Weight: 68.0396 kg

DRUGS (1)
  1. AVELOX [Suspect]
     Indication: BRONCHITIS
     Dosage: 1 DAILY 5 DAYS
     Dates: start: 20040403, end: 20040403

REACTIONS (9)
  - CONFUSIONAL STATE [None]
  - COORDINATION ABNORMAL [None]
  - DISTURBANCE IN ATTENTION [None]
  - DIZZINESS [None]
  - FEELING DRUNK [None]
  - HYPOAESTHESIA [None]
  - MEDICATION ERROR [None]
  - MUSCLE STRAIN [None]
  - PARAESTHESIA [None]
